FAERS Safety Report 12609912 (Version 1)
Quarter: 2016Q3

REPORT INFORMATION
  Report Type: Spontaneous
  Country: US (occurrence: US)
  Receive Date: 20160801
  Receipt Date: 20160801
  Transmission Date: 20161109
  Serious: No
  Sender: FDA-Public Use
  Company Number: US-BAYER-2016-141067

PATIENT
  Age: 49 Year
  Sex: Female

DRUGS (2)
  1. ADVIL [Suspect]
     Active Substance: IBUPROFEN
  2. ALEVE [Suspect]
     Active Substance: NAPROXEN SODIUM
     Indication: ANALGESIC THERAPY
     Dosage: UNK DF, UNK
     Dates: start: 20160717, end: 20160718

REACTIONS (3)
  - Intentional overdose [None]
  - Lethargy [None]
  - Pain [None]

NARRATIVE: CASE EVENT DATE: 20160717
